FAERS Safety Report 7470083-3 (Version None)
Quarter: 2011Q2

REPORT INFORMATION
  Report Type: 
  Country: None (occurrence: None)
  Receive Date: 20110510
  Receipt Date: 20090604
  Transmission Date: 20111010
  Serious: Yes (Other)
  Sender: FDA-Public Use
  Company Number: A0791867A

PATIENT
  Age: 59 Year
  Sex: Male

DRUGS (2)
  1. AVANDIA [Suspect]
     Indication: DIABETES MELLITUS
     Route: 048
     Dates: start: 20010205, end: 20030301
  2. AVANDAMET [Suspect]
     Route: 048
     Dates: start: 20041217, end: 20080501

REACTIONS (1)
  - CEREBROVASCULAR ACCIDENT [None]
